FAERS Safety Report 9199082 (Version 1)
Quarter: 2013Q1

REPORT INFORMATION
  Report Type: Spontaneous
  Country: US (occurrence: US)
  Receive Date: 20130329
  Receipt Date: 20130329
  Transmission Date: 20140127
  Serious: No
  Sender: FDA-Public Use
  Company Number: US-PFIZER INC-2013098956

PATIENT
  Age: 66 Year
  Sex: Female
  Weight: 77.1 kg

DRUGS (7)
  1. ZYVOX [Suspect]
     Indication: INFECTION
     Dosage: 600 MG, DAILY
     Route: 048
     Dates: start: 20130313, end: 201303
  2. ZYVOX [Suspect]
     Dosage: 600 MG, 2X/DAY
     Dates: start: 201303, end: 201303
  3. CIPROFLOXACIN [Suspect]
     Dosage: 750 MG, 2X/DAY
     Dates: start: 201301
  4. INVANZ [Suspect]
     Indication: INFECTION
     Dosage: UNK, DAILY
     Dates: start: 2013
  5. AMLODIPINE BESILATE [Concomitant]
     Indication: BLOOD PRESSURE ABNORMAL
     Dosage: UNK
  6. AMBIEN [Concomitant]
     Indication: SLEEP DISORDER
     Dosage: UNK
  7. LYRICA [Concomitant]
     Indication: NEURALGIA
     Dosage: UNK

REACTIONS (7)
  - Drug ineffective [Unknown]
  - Tendon disorder [Unknown]
  - Ligament disorder [Unknown]
  - Bacterial infection [Unknown]
  - Malaise [Unknown]
  - Tongue discolouration [Not Recovered/Not Resolved]
  - Tooth discolouration [Not Recovered/Not Resolved]
